FAERS Safety Report 11914349 (Version 1)
Quarter: 2016Q1

REPORT INFORMATION
  Report Type: Spontaneous
  Country: CH (occurrence: CH)
  Receive Date: 20160113
  Receipt Date: 20160113
  Transmission Date: 20160526
  Serious: Yes (Hospitalization, Other)
  Sender: FDA-Public Use
  Company Number: CH-ASTRAZENECA-2016SE01308

PATIENT
  Age: 806 Month
  Sex: Female

DRUGS (6)
  1. TEMESTA [Concomitant]
     Active Substance: LORAZEPAM
     Route: 048
  2. TRITTICO [Concomitant]
     Active Substance: TRAZODONE HYDROCHLORIDE
  3. PAROXETINE [Concomitant]
     Active Substance: PAROXETINE\PAROXETINE HYDROCHLORIDE
  4. CIPRALEX [Concomitant]
     Active Substance: ESCITALOPRAM OXALATE
     Route: 048
  5. QUETIAPINE FUMARATE. [Suspect]
     Active Substance: QUETIAPINE FUMARATE
     Route: 048
     Dates: start: 201509, end: 201510
  6. HALDOL [Interacting]
     Active Substance: HALOPERIDOL
     Route: 048
     Dates: start: 201509, end: 201510

REACTIONS (7)
  - Hyperhidrosis [Unknown]
  - Masked facies [Unknown]
  - General physical health deterioration [Unknown]
  - Drug interaction [Unknown]
  - Gait disturbance [Unknown]
  - Neuroleptic malignant syndrome [Recovered/Resolved]
  - Musculoskeletal stiffness [Unknown]

NARRATIVE: CASE EVENT DATE: 201510
